FAERS Safety Report 15426020 (Version 2)
Quarter: 2019Q1

REPORT INFORMATION
  Report Type: Spontaneous
  Country: JP (occurrence: JP)
  Receive Date: 20180925
  Receipt Date: 20190131
  Transmission Date: 20190417
  Serious: Yes (Other)
  Sender: FDA-Public Use
  Company Number: PHJP2018JP016821

PATIENT
  Age: 34 Year
  Sex: Female

DRUGS (4)
  1. PREDONINE [Concomitant]
     Active Substance: PREDNISOLONE
     Indication: PRODUCT USED FOR UNKNOWN INDICATION
     Dosage: 5 MG, UNK
     Route: 065
  2. TYKERB [Suspect]
     Active Substance: LAPATINIB DITOSYLATE
     Indication: BREAST CANCER RECURRENT
     Dosage: 5 DF, QD (1250 MG DAILY)
     Route: 048
  3. FAMOTIDINE. [Concomitant]
     Active Substance: FAMOTIDINE
     Indication: PRODUCT USED FOR UNKNOWN INDICATION
     Dosage: 20 MG, UNK
     Route: 048
  4. E KEPPRA [Concomitant]
     Active Substance: LEVETIRACETAM
     Indication: PRODUCT USED FOR UNKNOWN INDICATION
     Dosage: 1000 MG, UNK
     Route: 065

REACTIONS (6)
  - Haemoglobin decreased [Unknown]
  - Blood albumin decreased [Unknown]
  - Protein total decreased [Unknown]
  - Osteonecrosis of jaw [Unknown]
  - Red blood cell count decreased [Unknown]
  - Platelet count decreased [Unknown]
